FAERS Safety Report 6853295-9 (Version None)
Quarter: 2010Q3

REPORT INFORMATION
  Report Type: 
  Country: None (occurrence: None)
  Receive Date: 20100717
  Receipt Date: 20071204
  Transmission Date: 20110219
  Serious: No
  Sender: FDA-Public Use
  Company Number: US-PFIZER INC-2007102233

PATIENT
  Sex: Female
  Weight: 102.1 kg

DRUGS (7)
  1. CHANTIX [Suspect]
     Indication: SMOKING CESSATION THERAPY
     Route: 048
     Dates: start: 20070728, end: 20071001
  2. AVANDAMET [Concomitant]
     Indication: DIABETES MELLITUS
  3. CRESTOR [Concomitant]
     Indication: BLOOD CHOLESTEROL INCREASED
  4. TRICOR [Concomitant]
     Indication: BLOOD CHOLESTEROL INCREASED
  5. DOXAZOSIN [Concomitant]
     Indication: HYPERTENSION
  6. CARDIZEM [Concomitant]
     Indication: HYPERTENSION
  7. ALTACE [Concomitant]

REACTIONS (1)
  - ABNORMAL DREAMS [None]
